FAERS Safety Report 9897409 (Version 1)
Quarter: 2014Q1

REPORT INFORMATION
  Report Type: Spontaneous
  Country: US (occurrence: US)
  Receive Date: 20140214
  Receipt Date: 20140214
  Transmission Date: 20141002
  Serious: Yes (Other)
  Sender: FDA-Public Use
  Company Number: US-JNJFOC-20140205039

PATIENT
  Sex: Male

DRUGS (2)
  1. RISPERIDONE [Suspect]
     Indication: MENTAL DISORDER
     Route: 030
     Dates: start: 2011
  2. RISPERIDONE [Suspect]
     Indication: MENTAL DISORDER
     Route: 048

REACTIONS (2)
  - Hepatic cancer [Unknown]
  - Breast swelling [Recovered/Resolved]
